FAERS Safety Report 5547070-5 (Version None)
Quarter: 2007Q4

REPORT INFORMATION
  Report Type: 
  Country: None (occurrence: None)
  Receive Date: 20071211
  Receipt Date: 20070219
  Transmission Date: 20080405
  Serious: No
  Sender: FDA-Public Use
  Company Number: US-AMGEN-KDL208793

PATIENT
  Sex: Male

DRUGS (3)
  1. ENBREL [Suspect]
     Indication: RHEUMATOID ARTHRITIS
     Route: 058
     Dates: start: 20070104
  2. UNSPECIFIED MEDICATION [Concomitant]
  3. UNSPECIFIED MEDICATION [Concomitant]

REACTIONS (6)
  - DYSPHONIA [None]
  - HYPERSOMNIA [None]
  - NAUSEA [None]
  - RASH [None]
  - RASH PRURITIC [None]
  - SOMNOLENCE [None]
